FAERS Safety Report 11896132 (Version 1)
Quarter: 2016Q1

REPORT INFORMATION
  Report Type: Spontaneous
  Country: US (occurrence: US)
  Receive Date: 20160107
  Receipt Date: 20160107
  Transmission Date: 20160526
  Serious: No
  Sender: FDA-Public Use
  Company Number: US-ROCHE-1611452

PATIENT
  Sex: Female

DRUGS (1)
  1. GAZYVA [Suspect]
     Active Substance: OBINUTUZUMAB
     Indication: BONE CANCER
     Dosage: PATIENT WAS ON CYCLE 5 OF 6
     Route: 065

REACTIONS (2)
  - Neutrophil count decreased [Unknown]
  - Disease progression [Unknown]
